FAERS Safety Report 23691652 (Version 1)
Quarter: 2024Q1

REPORT INFORMATION
  Report Type: Spontaneous
  Country: US (occurrence: None)
  Receive Date: 20240329
  Receipt Date: 20240329
  Transmission Date: 20240409
  Serious: No
  Sender: FDA-Public Use
  Company Number: None

PATIENT
  Age: 60 Year
  Sex: Female

DRUGS (4)
  1. AMBRISENTAN [Suspect]
     Active Substance: AMBRISENTAN
     Indication: Pulmonary hypertension
     Dosage: FREQUENCY : DAILY;?
     Route: 048
     Dates: start: 20220217
  2. Multivitamin [Concomitant]
  3. TYVASO [Concomitant]
     Active Substance: TREPROSTINIL
  4. SILDENAFIL [Concomitant]

REACTIONS (1)
  - Therapy interrupted [None]
